FAERS Safety Report 24104687 (Version 2)
Quarter: 2025Q3

REPORT INFORMATION
  Report Type: Spontaneous
  Country: None (occurrence: CA)
  Receive Date: 20240717
  Receipt Date: 20250714
  Transmission Date: 20251021
  Serious: Yes (Death, Hospitalization)
  Sender: MYLAN
  Company Number: CA-MYLANLABS-2024M1066009

PATIENT
  Sex: Female

DRUGS (36)
  1. REVATIO [Suspect]
     Active Substance: SILDENAFIL CITRATE
     Indication: Pulmonary arterial hypertension
     Dosage: 20 MILLIGRAM, TID (IN 3 DAY)
     Dates: start: 20220520
  2. REVATIO [Suspect]
     Active Substance: SILDENAFIL CITRATE
     Dosage: 20 MILLIGRAM, TID (IN 3 DAY)
     Route: 048
     Dates: start: 20220520
  3. REVATIO [Suspect]
     Active Substance: SILDENAFIL CITRATE
     Dosage: 20 MILLIGRAM, TID (IN 3 DAY)
     Route: 048
     Dates: start: 20220520
  4. REVATIO [Suspect]
     Active Substance: SILDENAFIL CITRATE
     Dosage: 20 MILLIGRAM, TID (IN 3 DAY)
     Dates: start: 20220520
  5. POTASSIUM CHLORIDE [Concomitant]
     Active Substance: POTASSIUM CHLORIDE
  6. POTASSIUM CHLORIDE [Concomitant]
     Active Substance: POTASSIUM CHLORIDE
     Route: 065
  7. POTASSIUM CHLORIDE [Concomitant]
     Active Substance: POTASSIUM CHLORIDE
     Route: 065
  8. POTASSIUM CHLORIDE [Concomitant]
     Active Substance: POTASSIUM CHLORIDE
  9. APIXABAN [Concomitant]
     Active Substance: APIXABAN
  10. APIXABAN [Concomitant]
     Active Substance: APIXABAN
     Route: 065
  11. APIXABAN [Concomitant]
     Active Substance: APIXABAN
     Route: 065
  12. APIXABAN [Concomitant]
     Active Substance: APIXABAN
  13. BISOPROLOL [Concomitant]
     Active Substance: BISOPROLOL
  14. BISOPROLOL [Concomitant]
     Active Substance: BISOPROLOL
     Route: 065
  15. BISOPROLOL [Concomitant]
     Active Substance: BISOPROLOL
     Route: 065
  16. BISOPROLOL [Concomitant]
     Active Substance: BISOPROLOL
  17. ZOPICLONE [Concomitant]
     Active Substance: ZOPICLONE
  18. ZOPICLONE [Concomitant]
     Active Substance: ZOPICLONE
     Route: 065
  19. ZOPICLONE [Concomitant]
     Active Substance: ZOPICLONE
     Route: 065
  20. ZOPICLONE [Concomitant]
     Active Substance: ZOPICLONE
  21. FUROSEMIDE [Concomitant]
     Active Substance: FUROSEMIDE
  22. FUROSEMIDE [Concomitant]
     Active Substance: FUROSEMIDE
     Route: 065
  23. FUROSEMIDE [Concomitant]
     Active Substance: FUROSEMIDE
     Route: 065
  24. FUROSEMIDE [Concomitant]
     Active Substance: FUROSEMIDE
  25. TYLENOL [Concomitant]
     Active Substance: ACETAMINOPHEN
  26. TYLENOL [Concomitant]
     Active Substance: ACETAMINOPHEN
     Route: 065
  27. TYLENOL [Concomitant]
     Active Substance: ACETAMINOPHEN
     Route: 065
  28. TYLENOL [Concomitant]
     Active Substance: ACETAMINOPHEN
  29. VITAMIN C [Concomitant]
     Active Substance: ASCORBIC ACID
  30. VITAMIN C [Concomitant]
     Active Substance: ASCORBIC ACID
     Route: 065
  31. VITAMIN C [Concomitant]
     Active Substance: ASCORBIC ACID
     Route: 065
  32. VITAMIN C [Concomitant]
     Active Substance: ASCORBIC ACID
  33. VITAMIN D [Concomitant]
     Active Substance: VITAMIN D NOS
  34. VITAMIN D [Concomitant]
     Active Substance: VITAMIN D NOS
     Route: 065
  35. VITAMIN D [Concomitant]
     Active Substance: VITAMIN D NOS
     Route: 065
  36. VITAMIN D [Concomitant]
     Active Substance: VITAMIN D NOS

REACTIONS (3)
  - Death [Fatal]
  - Gastric ulcer [Unknown]
  - Intra-abdominal haematoma [Unknown]
